FAERS Safety Report 4360630-2 (Version None)
Quarter: 2004Q2

REPORT INFORMATION
  Report Type: 
  Country: None (occurrence: None)
  Receive Date: 20040519
  Receipt Date: 20040519
  Transmission Date: 20050107
  Serious: Yes (Other)
  Sender: FDA-Public Use
  Company Number: None

PATIENT
  Age: 90 Year
  Sex: Female
  Weight: 82 kg

DRUGS (8)
  1. GATIFLOXACIN [Suspect]
     Indication: URINARY TRACT INFECTION
     Dosage: 400MG ONCE INTRAVENOUS
     Route: 042
     Dates: start: 20040125, end: 20040125
  2. ALBUTEROL [Concomitant]
  3. APAP-PR [Concomitant]
  4. PHENERGAN [Concomitant]
  5. NS [Concomitant]
  6. LIPITOR [Concomitant]
  7. ARICEPT [Concomitant]
  8. ASPIRIN [Concomitant]

REACTIONS (4)
  - ASPIRATION [None]
  - ELECTROENCEPHALOGRAM ABNORMAL [None]
  - GRAND MAL CONVULSION [None]
  - VOMITING [None]
